FAERS Safety Report 12174168 (Version 2)
Quarter: 2016Q1

REPORT INFORMATION
  Report Type: Report from Study
  Country: US (occurrence: US)
  Receive Date: 20160313
  Receipt Date: 20160314
  Transmission Date: 20160526
  Serious: Yes (Hospitalization, Other)
  Sender: FDA-Public Use
  Company Number: US-AMGEN-USASL2016022334

PATIENT
  Age: 69 Year
  Sex: Male

DRUGS (4)
  1. METOPROLOL. [Concomitant]
     Active Substance: METOPROLOL
     Dosage: 50 MG, UNK
  2. NIFEDIPINE. [Concomitant]
     Active Substance: NIFEDIPINE
     Dosage: 60 MG, UNK
  3. KYPROLIS [Suspect]
     Active Substance: CARFILZOMIB
     Indication: PLASMA CELL MYELOMA
     Dosage: UNK
     Route: 065
     Dates: start: 20160216
  4. OXYCODONE [Concomitant]
     Active Substance: OXYCODONE
     Indication: BLOOD PRESSURE INCREASED
     Dosage: UNK
     Dates: start: 201603

REACTIONS (9)
  - Brain oedema [Unknown]
  - Panic reaction [Unknown]
  - Platelet count decreased [Unknown]
  - Gait disturbance [Unknown]
  - Transfusion [Unknown]
  - Headache [Unknown]
  - Blood pressure increased [Unknown]
  - Musculoskeletal stiffness [Unknown]
  - Cerebral haemorrhage [Unknown]

NARRATIVE: CASE EVENT DATE: 201602
